FAERS Safety Report 9451656 (Version 1)
Quarter: 2013Q3

REPORT INFORMATION
  Report Type: Spontaneous
  Country: FR (occurrence: FR)
  Receive Date: 20130812
  Receipt Date: 20130812
  Transmission Date: 20140515
  Serious: Yes (Hospitalization, Other)
  Sender: FDA-Public Use
  Company Number: FR-AMGEN-FRASP2013055736

PATIENT
  Age: 82 Year
  Sex: Female

DRUGS (7)
  1. ENBREL [Suspect]
     Indication: PSORIASIS
     Dosage: 50 MG, WEEKLY
     Route: 058
     Dates: start: 201211, end: 201301
  2. AMIODARONE [Concomitant]
     Dosage: 200 MG, 1X/DAY
  3. TRANDOLAPRIL [Concomitant]
     Dosage: 4 MG, 1X/DAY
  4. LASILIX                            /00032601/ [Concomitant]
     Dosage: 40 MG, 1X/DAY
  5. MIANSERIN [Concomitant]
     Dosage: 30 MG, 1X/DAY
  6. ZOPICLONE [Concomitant]
     Dosage: 7.5 MG, 1X/DAY, IN THE EVENING
  7. AERIUS                             /01009701/ [Concomitant]
     Dosage: 5 MG, 1X/DAY

REACTIONS (3)
  - Pulmonary oedema [Recovering/Resolving]
  - Erysipelas [Recovered/Resolved]
  - Influenza [Recovered/Resolved]
